FAERS Safety Report 7021919-1 (Version None)
Quarter: 2010Q3

REPORT INFORMATION
  Report Type: 
  Country: None (occurrence: None)
  Receive Date: 20100930
  Receipt Date: 20100924
  Transmission Date: 20110219
  Serious: Yes (Hospitalization)
  Sender: FDA-Public Use
  Company Number: AU-WYE-G06723110

PATIENT
  Sex: Male

DRUGS (2)
  1. PRISTIQ [Suspect]
     Indication: MAJOR DEPRESSION
     Dosage: 150MG, THEN DECREASD OVER 1 MONTH TO WITHDRAWAL FROM PRISTIQ
  2. AVANDIA [Concomitant]
     Dosage: 60MG 1 DAILY AT NIGHT

REACTIONS (3)
  - ALCOHOL PROBLEM [None]
  - URINARY INCONTINENCE [None]
  - URINARY RETENTION [None]
